FAERS Safety Report 24730486 (Version 1)
Quarter: 2024Q4

REPORT INFORMATION
  Report Type: Spontaneous
  Country: FR (occurrence: FR)
  Receive Date: 20241213
  Receipt Date: 20241213
  Transmission Date: 20250114
  Serious: Yes (Hospitalization)
  Sender: TEVA
  Company Number: None

PATIENT
  Age: 68 Year
  Sex: Male
  Weight: 73 kg

DRUGS (3)
  1. FLUOROURACIL [Suspect]
     Active Substance: FLUOROURACIL
     Indication: Oesophageal squamous cell carcinoma metastatic
     Dosage: TIME INTERVAL: CYCLICAL: 4550MG OVER 48 HOURS EVERY 2 WEEKS
     Route: 042
     Dates: start: 20240723
  2. OPDIVO [Suspect]
     Active Substance: NIVOLUMAB
     Indication: Oesophageal squamous cell carcinoma metastatic
     Dosage: TIME INTERVAL: CYCLICAL: 4 ADMINISTRATIONS IN TOTAL
     Route: 042
     Dates: start: 20240723, end: 20240903
  3. OXALIPLATIN [Suspect]
     Active Substance: OXALIPLATIN
     Indication: Oesophageal squamous cell carcinoma metastatic
     Dosage: TIME INTERVAL: CYCLICAL: 1 CYCLE EVERY 2 WEEKS
     Route: 042
     Dates: start: 20240723

REACTIONS (2)
  - Colitis [Not Recovered/Not Resolved]
  - Pancreatitis acute [Recovered/Resolved]

NARRATIVE: CASE EVENT DATE: 20240916
